FAERS Safety Report 11439943 (Version 1)
Quarter: 2015Q3

REPORT INFORMATION
  Report Type: Spontaneous
  Country: US (occurrence: US)
  Receive Date: 20150901
  Receipt Date: 20150901
  Transmission Date: 20151125
  Serious: No
  Sender: FDA-Public Use
  Company Number: US-ROCHE-1124216

PATIENT
  Sex: Male

DRUGS (4)
  1. BOCEPREVIR [Interacting]
     Active Substance: BOCEPREVIR
     Indication: CHRONIC HEPATITIS C
     Route: 048
     Dates: start: 20120921
  2. DESYREL [Interacting]
     Active Substance: TRAZODONE HYDROCHLORIDE
  3. RIBAVIRIN. [Suspect]
     Active Substance: RIBAVIRIN
     Indication: CHRONIC HEPATITIS C
     Dosage: IN DIVIDED DOSES 600/400
     Route: 065
     Dates: start: 20120817
  4. PEGASYS [Suspect]
     Active Substance: PEGINTERFERON ALFA-2A
     Indication: CHRONIC HEPATITIS C
     Route: 058
     Dates: start: 20120817

REACTIONS (3)
  - Tremor [Unknown]
  - Night sweats [Unknown]
  - Vertigo [Unknown]
